FAERS Safety Report 7352235-6 (Version None)
Quarter: 2011Q1

REPORT INFORMATION
  Report Type: 
  Country: None (occurrence: None)
  Receive Date: 20110315
  Receipt Date: 20100916
  Transmission Date: 20110831
  Serious: Yes (Other)
  Sender: FDA-Public Use
  Company Number: US-BAYER-201015414NA

PATIENT
  Sex: Female
  Weight: 59.091 kg

DRUGS (8)
  1. ADVIL LIQUI-GELS [Concomitant]
     Indication: PAIN
  2. YASMIN [Suspect]
     Route: 048
     Dates: start: 20080211, end: 20080222
  3. HORMONES NOS [Concomitant]
     Indication: ANAEMIA
  4. CALCIUM [Concomitant]
  5. CLARITIN [Concomitant]
     Dosage: ON AND OFF
     Dates: start: 19900101
  6. ZYRTEC [Concomitant]
     Dosage: ON AND OFF
     Dates: start: 20070101
  7. IRON SUPPLEMENT [Concomitant]
     Dates: start: 20080401
  8. ZOLOFT [Concomitant]
     Dates: start: 20091001

REACTIONS (3)
  - OEDEMA PERIPHERAL [None]
  - DEEP VEIN THROMBOSIS [None]
  - PAIN IN EXTREMITY [None]
